FAERS Safety Report 17559129 (Version 1)
Quarter: 2020Q1

REPORT INFORMATION
  Report Type: Spontaneous
  Country: US (occurrence: US)
  Receive Date: 20200319
  Receipt Date: 20200319
  Transmission Date: 20200409
  Serious: No
  Sender: FDA-Public Use
  Company Number: US-LUPIN PHARMACEUTICALS INC.-2019-06332

PATIENT
  Age: 18 Year
  Sex: Female

DRUGS (1)
  1. NORETHINDRONE AND EE AND FE FUMARATE (ETHINYL ESTRADIOL\FERROUS FUMARATE\NORETHINDRONE ACETATE) [Suspect]
     Active Substance: ETHINYL ESTRADIOL\FERROUS FUMARATE\NORETHINDRONE ACETATE
     Indication: ORAL CONTRACEPTION
     Dosage: UNK
     Route: 048

REACTIONS (4)
  - Chest discomfort [Recovered/Resolved]
  - Drug hypersensitivity [None]
  - Throat tightness [Recovered/Resolved]
  - Rash maculo-papular [Recovered/Resolved]
